FAERS Safety Report 12304987 (Version 2)
Quarter: 2016Q2

REPORT INFORMATION
  Report Type: Spontaneous
  Country: JP (occurrence: JP)
  Receive Date: 20160426
  Receipt Date: 20160523
  Transmission Date: 20160815
  Serious: Yes (Hospitalization, Other)
  Sender: FDA-Public Use
  Company Number: JP-ASTELLAS-2016JP002851

PATIENT
  Age: 9 Month
  Sex: Female
  Weight: 10 kg

DRUGS (16)
  1. PROGRAF [Suspect]
     Active Substance: TACROLIMUS\TACROLIMUS ANHYDROUS
     Dosage: 0.08 MG, ONCE DAILY
     Route: 041
     Dates: start: 20160222, end: 20160222
  2. MODACIN [Concomitant]
     Active Substance: CEFTAZIDIME
     Indication: INFECTION PROPHYLAXIS
     Dosage: 0.35 G, 4 TIMES DAILY
     Route: 041
     Dates: start: 20160214, end: 20160225
  3. PROGRAF [Suspect]
     Active Substance: TACROLIMUS\TACROLIMUS ANHYDROUS
     Dosage: 0.01 MG, ONCE DAILY
     Route: 041
     Dates: start: 20160227, end: 20160320
  4. PROGRAF [Suspect]
     Active Substance: TACROLIMUS\TACROLIMUS ANHYDROUS
     Dosage: 0.02 MG, ONCE DAILY
     Route: 041
     Dates: start: 20160321, end: 20160321
  5. METHOTREXATE [Concomitant]
     Active Substance: METHOTREXATE
     Indication: PROPHYLAXIS AGAINST GRAFT VERSUS HOST DISEASE
     Dosage: UNK UNK, UNKNOWN FREQ.
     Route: 065
  6. SOL MELCORT TAISHO [Suspect]
     Active Substance: METHYLPREDNISOLONE SODIUM SUCCINATE
     Indication: GRAFT VERSUS HOST DISEASE IN SKIN
     Route: 041
     Dates: start: 20160301, end: 20160515
  7. NICARDIPINE [Concomitant]
     Active Substance: NICARDIPINE
     Dosage: 0.5 G, CONTINUOUS
     Route: 041
     Dates: start: 20160225, end: 20160324
  8. FUNGUARD [Concomitant]
     Active Substance: MICAFUNGIN SODIUM
     Indication: INFECTION PROPHYLAXIS
     Route: 041
     Dates: start: 20160112
  9. BUSULFAN. [Concomitant]
     Active Substance: BUSULFAN
     Indication: BONE MARROW CONDITIONING REGIMEN
     Dosage: UNK UNK, UNKNOWN FREQ.
     Route: 065
  10. PROGRAF [Suspect]
     Active Substance: TACROLIMUS\TACROLIMUS ANHYDROUS
     Dosage: 0.3 MG, ONCE DAILY
     Route: 041
     Dates: start: 20160121, end: 20160221
  11. SOL MELCORT TAISHO [Suspect]
     Active Substance: METHYLPREDNISOLONE SODIUM SUCCINATE
     Indication: PERICARDIAL EFFUSION
  12. PROGRAF [Suspect]
     Active Substance: TACROLIMUS\TACROLIMUS ANHYDROUS
     Indication: PROPHYLAXIS AGAINST GRAFT VERSUS HOST DISEASE
     Dosage: UNK UNK, UNKNOWN FREQ.
     Route: 041
     Dates: start: 20160120, end: 20160120
  13. CYCLOPHOSPHAMIDE. [Concomitant]
     Active Substance: CYCLOPHOSPHAMIDE
     Indication: BONE MARROW CONDITIONING REGIMEN
     Dosage: UNK UNK, UNKNOWN FREQ.
     Route: 065
  14. ETOPOSIDE. [Concomitant]
     Active Substance: ETOPOSIDE
     Indication: BONE MARROW CONDITIONING REGIMEN
     Dosage: UNK UNK, UNKNOWN FREQ.
     Route: 065
  15. NICARDIPINE [Concomitant]
     Active Substance: NICARDIPINE
     Indication: HYPERTENSION
     Dosage: 0.5 G, CONTINUOUS
     Route: 041
     Dates: start: 20160128, end: 20160223
  16. NICARDIPINE [Concomitant]
     Active Substance: NICARDIPINE
     Route: 041
     Dates: start: 20160325, end: 20160402

REACTIONS (4)
  - Pericardial effusion [Recovering/Resolving]
  - Thrombotic microangiopathy [Recovering/Resolving]
  - Renal disorder [Recovering/Resolving]
  - Hypertension [Recovering/Resolving]

NARRATIVE: CASE EVENT DATE: 20160128
